FAERS Safety Report 6657986-4 (Version None)
Quarter: 2010Q1

REPORT INFORMATION
  Report Type: 
  Country: None (occurrence: None)
  Receive Date: 20100330
  Receipt Date: 20100324
  Transmission Date: 20100710
  Serious: Yes (Hospitalization)
  Sender: FDA-Public Use
  Company Number: US-SANOFI-AVENTIS-2010SA012942

PATIENT
  Age: 59 Year
  Sex: Female

DRUGS (1)
  1. NASACORT AQ [Suspect]
     Route: 045

REACTIONS (2)
  - ASTHMA [None]
  - HYPERSENSITIVITY [None]
